FAERS Safety Report 4446528-X (Version None)
Quarter: 2004Q3

REPORT INFORMATION
  Report Type: 
  Country: None (occurrence: None)
  Receive Date: 20040902
  Receipt Date: 20040817
  Transmission Date: 20050211
  Serious: Yes (Other)
  Sender: FDA-Public Use
  Company Number: GBS040414832

PATIENT
  Age: 74 Year
  Sex: Male

DRUGS (3)
  1. RALOXIFENE HCL [Suspect]
     Indication: OSTEOPOROSIS
     Dosage: 1 DSG FORM/1 DAY
     Dates: start: 20030112, end: 20040301
  2. CAPRIN (ACETYLSALICYLIC ACID) [Concomitant]
  3. IDEOS [Concomitant]

REACTIONS (1)
  - PALPITATIONS [None]
